FAERS Safety Report 5769898-9 (Version None)
Quarter: 2008Q2

REPORT INFORMATION
  Report Type: 
  Country: None (occurrence: None)
  Receive Date: 20080613
  Receipt Date: 20080411
  Transmission Date: 20081010
  Serious: No
  Sender: FDA-Public Use
  Company Number: US-ABBOTT-08P-163-0447040-00

PATIENT
  Sex: Female
  Weight: 104.42 kg

DRUGS (11)
  1. HUMIRA [Suspect]
     Indication: RHEUMATOID ARTHRITIS
     Route: 058
     Dates: start: 20080206
  2. GUAIFENESIN [Suspect]
     Indication: SNORING
     Route: 048
  3. FLUTICASONE PROPIONATE [Suspect]
     Indication: SNORING
     Route: 045
  4. FUROSEMIDE [Concomitant]
     Indication: RENAL IMPAIRMENT
     Dosage: 40 MG DAILY
     Route: 048
  5. CARDIZEM CR [Concomitant]
     Indication: HYPERTENSION
     Dosage: 240 MG DAILY
     Route: 048
  6. ACETAMINOPHEN [Concomitant]
     Indication: RHEUMATOID ARTHRITIS
     Route: 048
  7. ESTROGENS CONJUGATED [Concomitant]
     Indication: HOT FLUSH
     Route: 048
  8. LISINOPRIL [Concomitant]
     Indication: HYPERTENSION
     Route: 048
  9. ERGOCALCIFEROL [Concomitant]
     Indication: ANTIBIOTIC PROPHYLAXIS
     Route: 048
  10. PYRIDOXINE HYDROCHLORIDE [Concomitant]
     Indication: DRUG USE FOR UNKNOWN INDICATION
     Route: 048
  11. ISONIAZID [Concomitant]
     Indication: ANTIBIOTIC PROPHYLAXIS
     Route: 048
     Dates: start: 20070101

REACTIONS (4)
  - OEDEMA PERIPHERAL [None]
  - PRURITUS GENERALISED [None]
  - RASH [None]
  - SWELLING FACE [None]
